FAERS Safety Report 5631843-4 (Version None)
Quarter: 2008Q1

REPORT INFORMATION
  Report Type: 
  Country: None (occurrence: None)
  Receive Date: 20080212
  Receipt Date: 20080130
  Transmission Date: 20080703
  Serious: Yes (Hospitalization, Other)
  Sender: FDA-Public Use
  Company Number: 2008SP002733

PATIENT
  Age: 65 Year
  Sex: Male

DRUGS (12)
  1. EPTIFIBATIDE (S-P) (EPTIFIBATIDE) [Suspect]
     Indication: ANGINA PECTORIS
     Dosage: INDRP
     Route: 041
     Dates: start: 20071109, end: 20071110
  2. EPTIFIBATIDE (S-P) (EPTIFIBATIDE) [Suspect]
     Indication: HYPERTONIA
     Dosage: INDRP
     Route: 041
     Dates: start: 20071109, end: 20071110
  3. FONDAPARINUX (FONDAPARINUX) [Suspect]
     Indication: ANGINA PECTORIS
     Dosage: 2.5 MG;QD;
     Dates: start: 20071109, end: 20071109
  4. FONDAPARINUX (FONDAPARINUX) [Suspect]
     Indication: HYPERTONIA
     Dosage: 2.5 MG;QD;
     Dates: start: 20071109, end: 20071109
  5. LIPITOR [Concomitant]
  6. FELODIPINE [Concomitant]
  7. LOPID [Concomitant]
  8. GLIBENKLAMID [Concomitant]
  9. ASPIRIN [Concomitant]
  10. HUMALOG [Concomitant]
  11. PLAVIX [Concomitant]
  12. LANTUS [Concomitant]

REACTIONS (2)
  - ANAEMIA [None]
  - THROMBOCYTOPENIA [None]
